FAERS Safety Report 25554908 (Version 2)
Quarter: 2025Q3

REPORT INFORMATION
  Report Type: Report from Study
  Country: CA (occurrence: CA)
  Receive Date: 20250715
  Receipt Date: 20250721
  Transmission Date: 20251020
  Serious: Yes (Other)
  Sender: TAKEDA
  Company Number: CA-TAKEDA-2023TUS090912

PATIENT
  Age: 72 Year
  Sex: Male

DRUGS (5)
  1. VEDOLIZUMAB [Suspect]
     Active Substance: VEDOLIZUMAB
     Indication: Colitis ulcerative
  2. VEDOLIZUMAB [Suspect]
     Active Substance: VEDOLIZUMAB
     Dosage: 300 MILLIGRAM, Q4WEEKS
     Dates: start: 20240515, end: 20250709
  3. METFORMIN [Concomitant]
     Active Substance: METFORMIN HYDROCHLORIDE
  4. DILTIAZEM [Concomitant]
     Active Substance: DILTIAZEM
  5. FINASTERIDE [Concomitant]
     Active Substance: FINASTERIDE

REACTIONS (11)
  - Intestinal tuberculosis [Unknown]
  - Frequent bowel movements [Unknown]
  - Diarrhoea [Unknown]
  - Therapy partial responder [Unknown]
  - Anaemia [Unknown]
  - Faeces soft [Unknown]
  - Off label use [Unknown]
  - Malaise [Unknown]
  - Feeling cold [Unknown]
  - Haemorrhoids [Unknown]
  - Arthralgia [Unknown]

NARRATIVE: CASE EVENT DATE: 20240515
